FAERS Safety Report 18588561 (Version 1)
Quarter: 2020Q4

REPORT INFORMATION
  Report Type: Spontaneous
  Country: ET (occurrence: ET)
  Receive Date: 20201207
  Receipt Date: 20201207
  Transmission Date: 20210114
  Serious: Yes (Death, Hospitalization, Other)
  Sender: FDA-Public Use
  Company Number: ET-AMNEAL PHARMACEUTICALS-2020-AMRX-03747

PATIENT
  Age: 35 Year
  Sex: Female

DRUGS (2)
  1. WARFARIN SODIUM. [Suspect]
     Active Substance: WARFARIN SODIUM
     Indication: THROMBOSIS
     Dosage: 5 MILLIGRAM, DAILY
     Route: 048
  2. WARFARIN SODIUM. [Suspect]
     Active Substance: WARFARIN SODIUM
     Dosage: 7.5 MILLIGRAM, DAILY
     Route: 048

REACTIONS (6)
  - Cardiac arrest [Fatal]
  - Paroxysmal sympathetic hyperactivity [Recovering/Resolving]
  - Toxicity to various agents [Unknown]
  - Epistaxis [Unknown]
  - Status epilepticus [Recovering/Resolving]
  - Subdural haematoma [Recovering/Resolving]
